FAERS Safety Report 9105962 (Version 2)
Quarter: 2013Q1

REPORT INFORMATION
  Report Type: Report from Study
  Country: US (occurrence: US)
  Receive Date: 20130221
  Receipt Date: 20130318
  Transmission Date: 20140127
  Serious: Yes (Other)
  Sender: FDA-Public Use
  Company Number: US-US-EMD SERONO, INC.-7193939

PATIENT
  Age: 45 None
  Sex: Female

DRUGS (1)
  1. REBIF [Suspect]
     Indication: PRODUCT USED FOR UNKNOWN INDICATION
     Route: 058
     Dates: start: 20101122

REACTIONS (3)
  - Atypical pneumonia [Unknown]
  - Retinal haemorrhage [Recovering/Resolving]
  - Liver function test abnormal [Unknown]
